FAERS Safety Report 7917141 (Version 7)
Quarter: 2012Q4

REPORT INFORMATION
  Report Type: Report from Study
  Country: JP (occurrence: JP)
  Receive Date: 20110427
  Receipt Date: 20120921
  Transmission Date: 20130627
  Serious: Yes (Hospitalization)
  Sender: FDA-Public Use
  Company Number: JP-ABBOTT-11P-087-0721564-00

PATIENT
  Age: 30 Year
  Sex: Male
  Weight: 61.2 kg

DRUGS (17)
  1. HUMIRA 40 MG/ 0.8 ML PRE-FILLED SYRINGE [Suspect]
     Indication: CROHN^S DISEASE
     Route: 058
     Dates: start: 20110228, end: 20110228
  2. HUMIRA 40 MG/ 0.8 ML PRE-FILLED SYRINGE [Suspect]
     Dates: start: 20110314, end: 20110314
  3. HUMIRA 40 MG/ 0.8 ML PRE-FILLED SYRINGE [Suspect]
     Dates: start: 20110328, end: 20110411
  4. HUMIRA 40 MG/ 0.8 ML PRE-FILLED SYRINGE [Suspect]
     Dates: start: 20110524, end: 20110524
  5. HUMIRA 40 MG/ 0.8 ML PRE-FILLED SYRINGE [Suspect]
     Dates: start: 20110620, end: 20110620
  6. HUMIRA 40 MG/ 0.8 ML PRE-FILLED SYRINGE [Suspect]
     Dates: start: 20110704
  7. MESALAZINE [Concomitant]
     Indication: CROHN^S DISEASE
     Dosage: 3000mg daily
     Route: 048
  8. CLOSTRIDIUM BUTYRICUM [Concomitant]
     Indication: CROHN^S DISEASE
  9. ALBUMIN TANNATE [Concomitant]
     Indication: PROPHYLAXIS AGAINST DIARRHOEA
     Dosage: 3 g daily
     Route: 048
  10. ALBUMIN TANNATE [Concomitant]
     Indication: SUPPORTIVE CARE
  11. PARENTERAL NUTRITION [Concomitant]
     Indication: CROHN^S DISEASE
     Route: 048
     Dates: start: 20110512
  12. DIMETICONE [Concomitant]
     Indication: SUPPORTIVE CARE
     Dosage: 120 mg daily
     Route: 048
  13. CHLORPHENIRAMINE MALEATE [Concomitant]
     Indication: ADMINISTRATION RELATED REACTION
     Dosage: 6mg daily
     Route: 048
     Dates: start: 20110228, end: 20110302
  14. FAMOTIDINE [Concomitant]
     Indication: ADMINISTRATION RELATED REACTION
     Dosage: 20mg daily
     Route: 048
     Dates: start: 20110228, end: 20110302
  15. ACETAMINOPHEN [Concomitant]
     Indication: ADMINISTRATION RELATED REACTION
     Dosage: 900mg daily
     Dates: start: 20110228, end: 20110302
  16. HYDROCORTISONE SODIUM SUCCINATE [Concomitant]
     Indication: ADMINISTRATION RELATED REACTION
     Route: 041
     Dates: start: 20110228, end: 20110302
  17. SULPYRINE HYDRATE [Concomitant]
     Indication: PRODUCT USED FOR UNKNOWN INDICATION
     Dates: start: 20110228, end: 20110228

REACTIONS (4)
  - Ileus [Recovered/Resolved]
  - Gastrointestinal inflammation [Unknown]
  - Pyrexia [Recovering/Resolving]
  - Intestinal stenosis [Unknown]
